FAERS Safety Report 7413415-4 (Version None)
Quarter: 2011Q2

REPORT INFORMATION
  Report Type: 
  Country: None (occurrence: None)
  Receive Date: 20110413
  Receipt Date: 20110405
  Transmission Date: 20111010
  Serious: Yes (Hospitalization)
  Sender: FDA-Public Use
  Company Number: US-ELI_LILLY_AND_COMPANY-US201104001914

PATIENT
  Age: 61 Year
  Sex: Male
  Weight: 71.655 kg

DRUGS (4)
  1. ADCIRCA [Suspect]
  2. DIURETICS [Concomitant]
  3. REMODULIN [Concomitant]
     Dosage: 1 DF, UNKNOWN
     Dates: start: 20050201
  4. COUMADIN [Concomitant]

REACTIONS (4)
  - PAIN IN JAW [None]
  - FLUSHING [None]
  - DIARRHOEA [None]
  - TACHYCARDIA [None]
